FAERS Safety Report 4414049-6 (Version None)
Quarter: 2004Q3

REPORT INFORMATION
  Report Type: 
  Country: None (occurrence: None)
  Receive Date: 20040803
  Receipt Date: 20040722
  Transmission Date: 20050211
  Serious: Yes (Other)
  Sender: FDA-Public Use
  Company Number: IT-GLAXOSMITHKLINE-B0340672A

PATIENT
  Age: 70 Year
  Sex: Female

DRUGS (4)
  1. ROSIGLITAZONE MALEATE [Suspect]
     Dosage: 4MG PER DAY
     Route: 048
  2. LORAZEPAM [Concomitant]
  3. METFORMIN HCL [Concomitant]
     Route: 048
  4. THIORIDAZINE HCL [Concomitant]
     Route: 048

REACTIONS (3)
  - HAEMATOMA [None]
  - PETECHIAE [None]
  - THROMBOCYTOPENIA [None]
